FAERS Safety Report 4923213-9 (Version None)
Quarter: 2006Q1

REPORT INFORMATION
  Report Type: 
  Country: None (occurrence: None)
  Receive Date: 20060127
  Receipt Date: 20051031
  Transmission Date: 20060701
  Serious: Yes (Other)
  Sender: FDA-Public Use
  Company Number: 2005138748

PATIENT
  Age: 49 Year
  Sex: Female
  Weight: 40.8237 kg

DRUGS (14)
  1. LYRICA [Suspect]
     Indication: ADHESION
     Dosage: 150 MG (50 MG, 3 IN 1 D), ORAL
     Route: 048
     Dates: start: 20051003
  2. DETROL LA [Suspect]
     Indication: PAIN
     Dates: end: 20051001
  3. DETROL LA [Suspect]
     Indication: POLLAKIURIA
     Dates: end: 20051001
  4. NEURONTIN [Suspect]
     Indication: ADHESION
     Dosage: (3 TO 4 TIMES/DAY)
  5. PREDNISONE TAB [Suspect]
     Indication: HYPERSENSITIVITY
     Dosage: 150 MG (50 MG, 3 IN 1 D), ORAL
     Route: 048
     Dates: start: 20051024, end: 20051024
  6. BENADRYL [Suspect]
     Indication: HYPERSENSITIVITY
     Dosage: 50 MG (50 MG, 1 IN 1 D), ORAL
     Route: 048
     Dates: start: 20051024, end: 20051024
  7. MIRALAX [Concomitant]
  8. SANDIMMUNE [Concomitant]
  9. FOLTX (CYANOCOBALAMIN, FOLIC ACID, PYRIDOXINE) [Concomitant]
  10. CELLCEPT [Concomitant]
  11. PRILOSEC [Concomitant]
  12. PRAVACHOL [Concomitant]
  13. XANAX [Concomitant]
  14. FENTANYL [Concomitant]

REACTIONS (13)
  - ABDOMINAL PAIN [None]
  - ADHESION [None]
  - CHEST DISCOMFORT [None]
  - DIZZINESS [None]
  - DRUG INEFFECTIVE [None]
  - EYELID DISORDER [None]
  - MUSCULOSKELETAL DISCOMFORT [None]
  - MYALGIA [None]
  - NECK PAIN [None]
  - PAIN IN EXTREMITY [None]
  - PAIN OF SKIN [None]
  - SOMNOLENCE [None]
  - URINARY RETENTION [None]
